FAERS Safety Report 8334936-6 (Version None)
Quarter: 2012Q2

REPORT INFORMATION
  Report Type: 
  Country: None (occurrence: None)
  Receive Date: 20120503
  Receipt Date: 20120424
  Transmission Date: 20120825
  Serious: Yes (Other)
  Sender: FDA-Public Use
  Company Number: JP-JNJFOC-20120411282

PATIENT
  Age: 47 Year
  Sex: Female

DRUGS (4)
  1. METHOTREXATE [Suspect]
     Indication: ARTHRITIS
     Route: 048
  2. REMICADE [Suspect]
     Indication: ARTHRITIS
     Route: 042
  3. ADALIMUMAB [Suspect]
     Indication: ARTHRITIS
     Route: 065
  4. RHEUMATREX [Suspect]
     Indication: PRODUCT USED FOR UNKNOWN INDICATION

REACTIONS (2)
  - WEGENER'S GRANULOMATOSIS [None]
  - HYPERSENSITIVITY [None]
